FAERS Safety Report 23873959 (Version 6)
Quarter: 2024Q3

REPORT INFORMATION
  Report Type: Spontaneous
  Country: US (occurrence: US)
  Receive Date: 20240520
  Receipt Date: 20240813
  Transmission Date: 20241016
  Serious: Yes (Hospitalization, Other)
  Sender: VERTEX
  Company Number: US-VERTEX PHARMACEUTICALS-2024-008435

PATIENT

DRUGS (2)
  1. TRIKAFTA [Suspect]
     Active Substance: ELEXACAFTOR\IVACAFTOR\TEZACAFTOR
     Indication: Cystic fibrosis
     Dosage: UNKNOWN DOSAGE REGIMEN
     Route: 048
  2. LEVAQUIN [Suspect]
     Active Substance: LEVOFLOXACIN
     Indication: Product used for unknown indication
     Dosage: UNK
     Route: 042

REACTIONS (22)
  - Sedation [Unknown]
  - Haemoptysis [Unknown]
  - Norovirus infection [Unknown]
  - Infective pulmonary exacerbation of cystic fibrosis [Unknown]
  - Stress [Not Recovered/Not Resolved]
  - Pseudomonas infection [Not Recovered/Not Resolved]
  - Burkholderia cepacia complex infection [Unknown]
  - Klebsiella infection [Unknown]
  - Oedema peripheral [Not Recovered/Not Resolved]
  - Joint injury [Unknown]
  - Fear [Unknown]
  - Middle insomnia [Unknown]
  - Respiratory rate decreased [Not Recovered/Not Resolved]
  - Carbon dioxide increased [Unknown]
  - Depressed level of consciousness [Unknown]
  - Pulmonary function test decreased [Unknown]
  - Diabetes mellitus [Unknown]
  - Gastrointestinal disorder [Unknown]
  - Ileus paralytic [Unknown]
  - Fatigue [Not Recovered/Not Resolved]
  - Mental disorder [Not Recovered/Not Resolved]
  - Stomach mass [Unknown]
